FAERS Safety Report 16185081 (Version 6)
Quarter: 2020Q4

REPORT INFORMATION
  Report Type: Spontaneous
  Country: DK (occurrence: DK)
  Receive Date: 20190411
  Receipt Date: 20201230
  Transmission Date: 20210113
  Serious: Yes (Hospitalization, Other)
  Sender: FDA-Public Use
  Company Number: DK-BRISTOL-MYERS SQUIBB COMPANY-BMS-2019-034484

PATIENT
  Age: 62 Year
  Sex: Male
  Weight: 102 kg

DRUGS (16)
  1. ASACOL [Concomitant]
     Active Substance: MESALAMINE
     Indication: COLITIS ULCERATIVE
  2. PREDNISONE. [Concomitant]
     Active Substance: PREDNISONE
     Dosage: 5 MILLIGRAM
     Route: 065
  3. ELIQUIS [Suspect]
     Active Substance: APIXABAN
     Indication: THROMBOSIS PROPHYLAXIS
  4. KALIUMKLORID [Concomitant]
     Indication: MINERAL SUPPLEMENTATION
     Dosage: 750 MILLIGRAM, 1 DAY
     Route: 048
     Dates: start: 20190108
  5. SAROTEN [Concomitant]
     Active Substance: AMITRIPTYLINE
     Indication: NEURALGIA
     Dosage: 25 MILLIGRAM, 1 DAY
     Route: 048
     Dates: start: 20170912
  6. METOPROLOL. [Concomitant]
     Active Substance: METOPROLOL
     Indication: CARDIAC DISORDER
     Dosage: 2 TABLETS IN THE MORNING AND 1 TABLET IN THE EVENING
     Route: 048
  7. PREDNISONE. [Concomitant]
     Active Substance: PREDNISONE
     Indication: INFLAMMATORY BOWEL DISEASE
     Dosage: 10 MILLIGRAM 1 DAY
     Route: 054
     Dates: start: 20190103
  8. ASACOL [Concomitant]
     Active Substance: MESALAMINE
     Indication: PROCTITIS HAEMORRHAGIC
     Dosage: 800 MILLIGRAM, 1 DAY
     Route: 048
     Dates: start: 20181219
  9. SPIOLTO RESPIMAT [Concomitant]
     Active Substance: OLODATEROL HYDROCHLORIDE\TIOTROPIUM BROMIDE MONOHYDRATE
     Indication: LUNG DISORDER
     Dosage: 2 DOSAGE FORM, 1 DAY
     Route: 055
     Dates: start: 20190105
  10. ELIQUIS [Suspect]
     Active Substance: APIXABAN
     Indication: CEREBROVASCULAR ACCIDENT PROPHYLAXIS
     Dosage: 5 MILLIGRAM, BID
     Route: 048
     Dates: start: 20190118, end: 20190126
  11. VENTOLINE [SALBUTAMOL] [Concomitant]
     Active Substance: ALBUTEROL SULFATE
     Indication: LUNG DISORDER
     Dosage: 0.1 MILLIGRAM
     Route: 055
     Dates: start: 20180403
  12. KALEORID [Concomitant]
     Active Substance: POTASSIUM CHLORIDE
     Indication: MINERAL SUPPLEMENTATION
     Dosage: 750 MILLIGRAM
     Route: 048
     Dates: start: 20190108
  13. PREDNISOLONE. [Concomitant]
     Active Substance: PREDNISOLONE
     Indication: INFLAMMATORY BOWEL DISEASE
     Dosage: 10 MILLIGRAM, 1 DAY
     Route: 054
     Dates: start: 20190103
  14. PREDNISONE. [Concomitant]
     Active Substance: PREDNISONE
     Dosage: 37.5 MILLIGRAM
     Route: 065
  15. FUROSEMIDE. [Concomitant]
     Active Substance: FUROSEMIDE
     Indication: DIURETIC THERAPY
     Dosage: 40 MILLIGRAM 1 DAY
     Route: 048
     Dates: start: 20190113
  16. FURIX [FUROSEMIDE] [Concomitant]
     Active Substance: FUROSEMIDE
     Indication: DIURETIC THERAPY
     Dosage: 40 MILLIGRAM, 1 DAY
     Route: 048
     Dates: start: 20190113

REACTIONS (5)
  - Hypersensitivity vasculitis [Recovered/Resolved with Sequelae]
  - Rash erythematous [Recovering/Resolving]
  - Pain [Recovering/Resolving]
  - Oedema [Recovering/Resolving]
  - Pyrexia [Unknown]

NARRATIVE: CASE EVENT DATE: 20190119
